FAERS Safety Report 8870878 (Version 1)
Quarter: 2012Q4

REPORT INFORMATION
  Report Type: 
  Country: US (occurrence: US)
  Receive Date: 20121026
  Receipt Date: 20121026
  Transmission Date: 20130627
  Serious: No
  Sender: FDA-Public Use
  Company Number: US-AMGEN-USASP2012046503

PATIENT
  Age: 39 Year
  Sex: Male
  Weight: 99.77 kg

DRUGS (3)
  1. ENBREL [Suspect]
     Indication: PRODUCT USED FOR UNKNOWN INDICATION
     Dosage: 50 mg, 2 times/wk
     Route: 058
  2. MULTVIT                            /02281101/ [Concomitant]
     Dosage: UNK
  3. HUMIRA [Concomitant]
     Dosage: 40 mg/0.8

REACTIONS (2)
  - Urine flow decreased [Unknown]
  - Therapeutic response decreased [Unknown]
